FAERS Safety Report 24011407 (Version 1)
Quarter: 2024Q2

REPORT INFORMATION
  Report Type: Spontaneous
  Country: US (occurrence: US)
  Receive Date: 20240625
  Receipt Date: 20240625
  Transmission Date: 20240717
  Serious: Yes (Other)
  Sender: FDA-Public Use
  Company Number: US-FARMAPROD-202406-2279

PATIENT
  Age: 78 Year
  Sex: Female

DRUGS (9)
  1. OXERVATE [Suspect]
     Active Substance: CENEGERMIN-BKBJ
     Indication: Neurotrophic keratopathy
     Route: 047
     Dates: start: 20240522
  2. ZOLEDRONIC ACID [Concomitant]
     Active Substance: ZOLEDRONIC ACID
  3. PROTEIN [Concomitant]
     Active Substance: PROTEIN
  4. VITAMINS [Concomitant]
     Active Substance: VITAMINS
  5. ASPIRIN [Concomitant]
     Active Substance: ASPIRIN
  6. LOSARTAN POTASSIUM [Concomitant]
     Active Substance: LOSARTAN POTASSIUM
  7. SYSTANE  COMPLETE PF [Concomitant]
  8. LEVOTHYROXINE SODIUM [Concomitant]
     Active Substance: LEVOTHYROXINE SODIUM
  9. OFLOXACIN [Concomitant]
     Active Substance: OFLOXACIN

REACTIONS (3)
  - Bell^s palsy [Unknown]
  - Herpes zoster [Unknown]
  - Eye pain [Unknown]

NARRATIVE: CASE EVENT DATE: 20240522
